FAERS Safety Report 9577388 (Version 1)
Quarter: 2013Q4

REPORT INFORMATION
  Report Type: Spontaneous
  Country: US (occurrence: US)
  Receive Date: 20131001
  Receipt Date: 20131001
  Transmission Date: 20140711
  Serious: No
  Sender: FDA-Public Use
  Company Number: US-AMGEN-USASP2013007616

PATIENT
  Age: 9 Year
  Sex: Female
  Weight: 35.83 kg

DRUGS (3)
  1. ENBREL [Suspect]
     Indication: JUVENILE IDIOPATHIC ARTHRITIS
     Dosage: 12.5 MG EVERY MONDAY AND THURSDAY
     Route: 058
  2. IBUPROFEN [Concomitant]
     Dosage: 200 MG, UNK
  3. FIBER [Concomitant]
     Dosage: UNK
     Route: 048

REACTIONS (2)
  - Juvenile idiopathic arthritis [Unknown]
  - Ear infection [Unknown]
